FAERS Safety Report 10471798 (Version 1)
Quarter: 2014Q3

REPORT INFORMATION
  Report Type: Spontaneous
  Country: CN (occurrence: CN)
  Receive Date: 20140924
  Receipt Date: 20140924
  Transmission Date: 20150326
  Serious: Yes (Life-Threatening, Hospitalization, Other)
  Sender: FDA-Public Use
  Company Number: CN-ROCHE-1465025

PATIENT
  Age: 59 Year
  Sex: Female
  Weight: 45 kg

DRUGS (1)
  1. PEGASYS [Suspect]
     Active Substance: PEGINTERFERON ALFA-2A
     Indication: CHRONIC HEPATITIS B
     Route: 030
     Dates: start: 20140227

REACTIONS (3)
  - Red blood cell count decreased [Not Recovered/Not Resolved]
  - Thrombocytopenic purpura [Not Recovered/Not Resolved]
  - White blood cell count decreased [Not Recovered/Not Resolved]

NARRATIVE: CASE EVENT DATE: 20140227
